FAERS Safety Report 7703161-1 (Version None)
Quarter: 2011Q3

REPORT INFORMATION
  Report Type: 
  Country: None (occurrence: None)
  Receive Date: 20110823
  Receipt Date: 20110822
  Transmission Date: 20111222
  Serious: Yes (Other)
  Sender: FDA-Public Use
  Company Number: US-PFIZER INC-2011194128

PATIENT
  Age: 80 Year
  Sex: Female

DRUGS (3)
  1. GEODON [Suspect]
     Dosage: 80 MG, DAILY
     Dates: start: 20110101, end: 20110101
  2. GEODON [Suspect]
     Indication: SCHIZOPHRENIA
     Dosage: 40 MG, DAILY
     Dates: start: 20110701, end: 20110101
  3. GEODON [Suspect]
     Dosage: UNK, DAILY
     Dates: start: 20110101

REACTIONS (1)
  - MACULAR DEGENERATION [None]
